FAERS Safety Report 6044343-7 (Version None)
Quarter: 2009Q1

REPORT INFORMATION
  Report Type: 
  Country: None (occurrence: None)
  Receive Date: 20090120
  Receipt Date: 20090109
  Transmission Date: 20090719
  Serious: Yes (Other)
  Sender: FDA-Public Use
  Company Number: US-JNJFOC-20090102117

PATIENT
  Sex: Female
  Weight: 31 kg

DRUGS (21)
  1. INFLIXIMAB [Suspect]
     Route: 042
  2. INFLIXIMAB [Suspect]
     Route: 042
  3. INFLIXIMAB [Suspect]
     Route: 042
  4. INFLIXIMAB [Suspect]
     Route: 042
  5. INFLIXIMAB [Suspect]
     Route: 042
  6. INFLIXIMAB [Suspect]
     Indication: CROHN'S DISEASE
     Route: 042
  7. GROWTH HORMONE [Concomitant]
     Indication: DRUG USE FOR UNKNOWN INDICATION
  8. MULTI-VITAMINS [Concomitant]
     Indication: INFLAMMATORY BOWEL DISEASE
  9. FOLIC ACID [Concomitant]
     Indication: INFLAMMATORY BOWEL DISEASE
  10. STEROIDS [Concomitant]
  11. STEROIDS [Concomitant]
  12. STEROIDS [Concomitant]
  13. STEROIDS [Concomitant]
     Indication: PREMEDICATION
  14. ANTIHISTAMINES [Concomitant]
  15. ANTIHISTAMINES [Concomitant]
  16. ANTIHISTAMINES [Concomitant]
  17. ANTIHISTAMINES [Concomitant]
     Indication: PREMEDICATION
  18. ACETAMINOPHEN [Concomitant]
  19. ACETAMINOPHEN [Concomitant]
  20. ACETAMINOPHEN [Concomitant]
  21. ACETAMINOPHEN [Concomitant]
     Indication: PREMEDICATION

REACTIONS (2)
  - SKIN EXFOLIATION [None]
  - STAPHYLOCOCCAL INFECTION [None]
